FAERS Safety Report 7407680-7 (Version None)
Quarter: 2011Q2

REPORT INFORMATION
  Report Type: 
  Country: None (occurrence: None)
  Receive Date: 20110412
  Receipt Date: 20101123
  Transmission Date: 20111010
  Serious: Yes (Hospitalization)
  Sender: FDA-Public Use
  Company Number: CA-BAYER-201040804NA

PATIENT
  Age: 76 Year
  Sex: Female
  Weight: 57.9 kg

DRUGS (19)
  1. METFORMIN HCL [Concomitant]
     Route: 048
     Dates: start: 19850101
  2. IRON [Concomitant]
     Route: 048
     Dates: start: 20000101
  3. PRILOSEC [Concomitant]
     Route: 048
     Dates: start: 20000101
  4. TIAZAC [Concomitant]
     Route: 048
     Dates: start: 19890101
  5. CYCLOPHOSPHAMIDE [Suspect]
     Indication: NEUROENDOCRINE TUMOUR
     Dosage: CYCLE #1
     Route: 048
     Dates: start: 20090406
  6. NOVOLIN [INSULIN] [Concomitant]
     Dosage: SLIDING SCALE
     Dates: start: 20040101
  7. SANDOSTATIN [Concomitant]
     Dosage: 1/12
     Route: 030
     Dates: start: 20100720
  8. SORAFENIB (RAF KINASE INHIBITOR) [Suspect]
     Dosage: 200 MG, QD
     Route: 048
     Dates: start: 20101013, end: 20101109
  9. CYCLOPHOSPHAMIDE [Suspect]
     Dosage: CYCLE #20
     Route: 048
     Dates: start: 20101013, end: 20101109
  10. ATIVAN [Concomitant]
     Dosage: Q HS
     Route: 048
     Dates: start: 20070101
  11. FOSINOPRIL SODIUM [Concomitant]
     Route: 048
     Dates: start: 19890101
  12. MAGNESIUM [Concomitant]
     Route: 048
     Dates: start: 20100817
  13. DOMPERIDONE [Concomitant]
     Dates: end: 20101107
  14. CALCIUM +VIT D [Concomitant]
     Route: 048
     Dates: start: 19990101
  15. PRAVASTATIN [Concomitant]
     Route: 048
     Dates: start: 19890101
  16. LOMOTIL [Concomitant]
     Dosage: 1-2
     Route: 048
     Dates: start: 20100803
  17. SORAFENIB (RAF KINASE INHIBITOR) [Suspect]
     Indication: NEUROENDOCRINE TUMOUR
     Dosage: UNK
     Route: 048
     Dates: start: 20090406
  18. ALEVE [Concomitant]
     Dosage: 1 AM/PM
     Route: 048
     Dates: start: 20100201
  19. IMODIUM [Concomitant]
     Dates: start: 20090101

REACTIONS (7)
  - DEHYDRATION [None]
  - PLATELET DISORDER [None]
  - NEPHROTIC SYNDROME [None]
  - BLOOD CREATININE ABNORMAL [None]
  - EPISTAXIS [None]
  - DIARRHOEA [None]
  - BLOOD ALBUMIN ABNORMAL [None]
